FAERS Safety Report 7745208-2 (Version None)
Quarter: 2011Q3

REPORT INFORMATION
  Report Type: 
  Country: None (occurrence: None)
  Receive Date: 20110907
  Receipt Date: 20110824
  Transmission Date: 20111222
  Serious: Yes (Hospitalization, Other)
  Sender: FDA-Public Use
  Company Number: EU-2011-10133

PATIENT
  Sex: Male
  Weight: 92 kg

DRUGS (29)
  1. METACLOPRAMIDE (METACLOPRAMIDE HYDROCHLORIDE) [Concomitant]
  2. DIHYDROCODEINE BITARTRATE INJ [Concomitant]
  3. ENSURE (NUTRIENTS NOS) [Concomitant]
  4. RAMIPRIL [Concomitant]
  5. ASPIRIN [Concomitant]
  6. MEROPENEM [Concomitant]
  7. FILGRASTAM (FILGRASTAM) [Concomitant]
  8. TOPOTECAN [Suspect]
     Indication: CHEMOTHERAPY
     Dosage: 4.25 MG MILLIGRAM(S), DAILY DOSE, ORAL
     Route: 048
     Dates: start: 20110705, end: 20110710
  9. SIMVASTATIN [Concomitant]
  10. POTASSIUM CHLORIDE [Concomitant]
  11. BISOPROLOL FUMARATE [Concomitant]
  12. CYCLIZINE (CYCLIZINE) [Concomitant]
  13. SAMSCA [Suspect]
     Indication: NEOPLASM
     Dosage: SEE IMAGE
     Route: 048
     Dates: start: 20110817
  14. SAMSCA [Suspect]
     Indication: HYPONATRAEMIA
     Dosage: SEE IMAGE
     Route: 048
     Dates: start: 20110817
  15. SAMSCA [Suspect]
     Indication: INAPPROPRIATE ANTIDIURETIC HORMONE SECRETION
     Dosage: SEE IMAGE
     Route: 048
     Dates: start: 20110817
  16. SAMSCA [Suspect]
     Indication: NEOPLASM
     Dosage: SEE IMAGE
     Route: 048
     Dates: start: 20110813, end: 20110816
  17. SAMSCA [Suspect]
     Indication: HYPONATRAEMIA
     Dosage: SEE IMAGE
     Route: 048
     Dates: start: 20110813, end: 20110816
  18. SAMSCA [Suspect]
     Indication: INAPPROPRIATE ANTIDIURETIC HORMONE SECRETION
     Dosage: SEE IMAGE
     Route: 048
     Dates: start: 20110813, end: 20110816
  19. SAMSCA [Suspect]
     Indication: NEOPLASM
     Dosage: SEE IMAGE
     Route: 048
     Dates: start: 20110603, end: 20110624
  20. SAMSCA [Suspect]
     Indication: HYPONATRAEMIA
     Dosage: SEE IMAGE
     Route: 048
     Dates: start: 20110603, end: 20110624
  21. SAMSCA [Suspect]
     Indication: INAPPROPRIATE ANTIDIURETIC HORMONE SECRETION
     Dosage: SEE IMAGE
     Route: 048
     Dates: start: 20110603, end: 20110624
  22. SAMSCA [Suspect]
     Indication: NEOPLASM
     Dosage: SEE IMAGE
     Route: 048
     Dates: start: 20110624, end: 20110711
  23. SAMSCA [Suspect]
     Indication: HYPONATRAEMIA
     Dosage: SEE IMAGE
     Route: 048
     Dates: start: 20110624, end: 20110711
  24. SAMSCA [Suspect]
     Indication: INAPPROPRIATE ANTIDIURETIC HORMONE SECRETION
     Dosage: SEE IMAGE
     Route: 048
     Dates: start: 20110624, end: 20110711
  25. SAMSCA [Suspect]
     Indication: NEOPLASM
     Dosage: SEE IMAGE
     Route: 048
     Dates: start: 20110714, end: 20110812
  26. SAMSCA [Suspect]
     Indication: HYPONATRAEMIA
     Dosage: SEE IMAGE
     Route: 048
     Dates: start: 20110714, end: 20110812
  27. SAMSCA [Suspect]
     Indication: INAPPROPRIATE ANTIDIURETIC HORMONE SECRETION
     Dosage: SEE IMAGE
     Route: 048
     Dates: start: 20110714, end: 20110812
  28. OMEPRAZOLE [Concomitant]
  29. DEXAMETHASONE [Concomitant]

REACTIONS (7)
  - VOMITING [None]
  - HYPONATRAEMIA [None]
  - DEHYDRATION [None]
  - DISEASE RECURRENCE [None]
  - HYPOPHAGIA [None]
  - NEUTROPENIC SEPSIS [None]
  - DRUG INEFFECTIVE [None]
